FAERS Safety Report 20392669 (Version 1)
Quarter: 2022Q1

REPORT INFORMATION
  Report Type: Spontaneous
  Country: US (occurrence: US)
  Receive Date: 20220128
  Receipt Date: 20220128
  Transmission Date: 20220423
  Serious: Yes (Other)
  Sender: FDA-Public Use
  Company Number: US-BAYER-2022A011857

PATIENT
  Age: 84 Year
  Sex: Male

DRUGS (1)
  1. MIRALAX [Suspect]
     Active Substance: POLYETHYLENE GLYCOL 3350
     Dosage: UNK,  EVERY DAY FOR MORE THAN 2 MONTHS
     Route: 048

REACTIONS (7)
  - Autoimmune disorder [Unknown]
  - Systemic lupus erythematosus [Unknown]
  - Dry eye [Unknown]
  - Dry mouth [Unknown]
  - Nasal dryness [Unknown]
  - Product prescribing error [None]
  - Incorrect product administration duration [None]
